FAERS Safety Report 5211650-7 (Version None)
Quarter: 2007Q1

REPORT INFORMATION
  Report Type: 
  Country: None (occurrence: None)
  Receive Date: 20070118
  Receipt Date: 20070115
  Transmission Date: 20070707
  Serious: Yes (Life-Threatening, Other)
  Sender: FDA-Public Use
  Company Number: US-BAYER-200616531BWH

PATIENT
  Age: 62 Year
  Sex: Female

DRUGS (3)
  1. NIMOTOP [Suspect]
     Indication: SUBARACHNOID HAEMORRHAGE
     Dates: start: 20060925, end: 20061015
  2. FENTANYL TRANSDERMAL SYSTEM [Concomitant]
  3. PROPOFOL [Concomitant]

REACTIONS (2)
  - BRADYCARDIA [None]
  - CARDIO-RESPIRATORY ARREST [None]
